FAERS Safety Report 6662434-4 (Version None)
Quarter: 2010Q1

REPORT INFORMATION
  Report Type: 
  Country: None (occurrence: None)
  Receive Date: 20100331
  Receipt Date: 20100319
  Transmission Date: 20100710
  Serious: Yes (Hospitalization)
  Sender: FDA-Public Use
  Company Number: FR-WATSON-2010-04011

PATIENT
  Age: 10 Year
  Sex: Male

DRUGS (2)
  1. CLARITHROMYCIN [Suspect]
     Indication: RESPIRATORY TRACT INFECTION
     Dosage: 250 MG, BID
     Route: 065
  2. OXCARBAZEPINE [Suspect]
     Indication: EPILEPSY
     Dosage: 540MG AM, 510MG PM

REACTIONS (2)
  - DRUG INTERACTION [None]
  - DRUG TOXICITY [None]
